APPROVED DRUG PRODUCT: CARDIZEM
Active Ingredient: DILTIAZEM HYDROCHLORIDE
Strength: 100MG/VIAL **Federal Register determination that product was not discontinued or withdrawn for safety or effectiveness reasons**
Dosage Form/Route: INJECTABLE;INJECTION
Application: N020792 | Product #001
Applicant: BIOVAIL LABORATORIES INC
Approved: Sep 5, 1997 | RLD: No | RS: No | Type: DISCN